FAERS Safety Report 6991367-9 (Version None)
Quarter: 2010Q3

REPORT INFORMATION
  Report Type: 
  Country: None (occurrence: None)
  Receive Date: 20100916
  Receipt Date: 20090820
  Transmission Date: 20110219
  Serious: No
  Sender: FDA-Public Use
  Company Number: US-WYE-H10674209

PATIENT
  Sex: Female

DRUGS (3)
  1. PRISTIQ [Suspect]
     Indication: DEPRESSION
     Dosage: 50 MG EVERY 1 SEC
     Route: 048
     Dates: start: 20090730
  2. LIPITOR [Concomitant]
     Dosage: DOSE UNKNOWN
     Route: 065
  3. COUMADIN [Concomitant]
     Dosage: DOSE UNKNOWN
     Route: 065

REACTIONS (2)
  - INSOMNIA [None]
  - PARAESTHESIA [None]
